FAERS Safety Report 5423910-5 (Version None)
Quarter: 2007Q3

REPORT INFORMATION
  Report Type: 
  Country: None (occurrence: None)
  Receive Date: 20070823
  Receipt Date: 20070815
  Transmission Date: 20080115
  Serious: Yes (Disabling, Other)
  Sender: FDA-Public Use
  Company Number: CA-ASTRAZENECA-2007UW19226

PATIENT
  Age: 53 Year
  Sex: Female

DRUGS (7)
  1. ARIMIDEX [Suspect]
     Indication: BREAST CANCER
     Route: 048
     Dates: start: 20060101, end: 20070804
  2. EFFEXOR [Concomitant]
     Indication: ANTIDEPRESSANT THERAPY
  3. NAPROSYN [Concomitant]
     Indication: PERICARDITIS
     Dates: end: 20070804
  4. COLCHICINE [Concomitant]
     Indication: PERICARDITIS
     Dates: end: 20070804
  5. ASAPHEN [Concomitant]
     Indication: ANTICOAGULANT THERAPY
  6. SYNTHROID [Concomitant]
     Indication: THYROID THERAPY
  7. CALCIUM + VITAMIN D [Concomitant]
     Indication: OSTEOPOROSIS
     Dosage: 500 MG/ 400UI

REACTIONS (7)
  - ARTHRALGIA [None]
  - CHEST PAIN [None]
  - FATIGUE [None]
  - HOT FLUSH [None]
  - PAIN IN EXTREMITY [None]
  - PERICARDITIS [None]
  - WRONG TECHNIQUE IN DRUG USAGE PROCESS [None]
